FAERS Safety Report 14406655 (Version 1)
Quarter: 2018Q1

REPORT INFORMATION
  Report Type: Spontaneous
  Country: US (occurrence: US)
  Receive Date: 20180118
  Receipt Date: 20180118
  Transmission Date: 20180509
  Serious: No
  Sender: FDA-Public Use
  Company Number: None

PATIENT
  Age: 63 Year
  Sex: Male
  Weight: 78.02 kg

DRUGS (3)
  1. VITAMINS [Concomitant]
     Active Substance: VITAMINS
  2. ARIPIPRAZOLE. [Suspect]
     Active Substance: ARIPIPRAZOLE
     Dosage: TAKE 1/2, THEN BUILD UP, MOUTH
     Route: 048
     Dates: start: 20170922
  3. CHIA SEEDS [Concomitant]
     Active Substance: OMEGA-3 FATTY ACIDS

REACTIONS (7)
  - Nasal congestion [None]
  - Nasopharyngitis [None]
  - Anxiety [None]
  - Dizziness [None]
  - Vomiting [None]
  - Fall [None]
  - Oropharyngeal pain [None]

NARRATIVE: CASE EVENT DATE: 20170919
